FAERS Safety Report 12538291 (Version 3)
Quarter: 2016Q3

REPORT INFORMATION
  Report Type: Spontaneous
  Country: US (occurrence: US)
  Receive Date: 20160707
  Receipt Date: 20160923
  Transmission Date: 20161109
  Serious: No
  Sender: FDA-Public Use
  Company Number: US-009507513-1606USA013420

PATIENT
  Age: 14 Year
  Sex: Female
  Weight: 51.7 kg

DRUGS (1)
  1. NEXPLANON [Suspect]
     Active Substance: ETONOGESTREL
     Indication: CONTRACEPTION
     Dosage: LEFT ARM IMPLANT /EVERY 3 YEAR
     Route: 059
     Dates: start: 20160315

REACTIONS (3)
  - Mood swings [Unknown]
  - Nausea [Unknown]
  - Menorrhagia [Unknown]

NARRATIVE: CASE EVENT DATE: 2016
